FAERS Safety Report 7275650-8 (Version None)
Quarter: 2011Q1

REPORT INFORMATION
  Report Type: 
  Country: None (occurrence: None)
  Receive Date: 20110204
  Receipt Date: 20110126
  Transmission Date: 20110831
  Serious: Yes (Hospitalization)
  Sender: FDA-Public Use
  Company Number: CA-JNJFOC-20110107855

PATIENT
  Sex: Female
  Weight: 65.4 kg

DRUGS (4)
  1. REMICADE [Suspect]
     Route: 042
  2. TYLENOL-500 [Concomitant]
     Indication: PREMEDICATION
  3. SOLU-CORTEF [Concomitant]
     Indication: PREMEDICATION
     Route: 042
  4. REMICADE [Suspect]
     Indication: COLITIS ULCERATIVE
     Dosage: 9TH INFUSION
     Route: 042

REACTIONS (4)
  - ADVERSE EVENT [None]
  - NASOPHARYNGITIS [None]
  - DIZZINESS [None]
  - SYNCOPE [None]
